FAERS Safety Report 10235534 (Version 1)
Quarter: 2014Q2

REPORT INFORMATION
  Report Type: Spontaneous
  Country: GB (occurrence: GB)
  Receive Date: 20140613
  Receipt Date: 20140613
  Transmission Date: 20141212
  Serious: Yes (Other)
  Sender: FDA-Public Use
  Company Number: GB-SA-2014SA072827

PATIENT
  Sex: Male
  Weight: 120 kg

DRUGS (2)
  1. ENOXAPARIN SODIUM [Suspect]
     Indication: PRODUCT USED FOR UNKNOWN INDICATION
     Route: 065
  2. FRAGMIN [Concomitant]
     Dosage: STRENGTH: 10,000/0.4ML

REACTIONS (1)
  - Atrial fibrillation [Unknown]
